FAERS Safety Report 9092330 (Version 3)
Quarter: 2013Q3

REPORT INFORMATION
  Report Type: Spontaneous
  Country: US (occurrence: US)
  Receive Date: 20130131
  Receipt Date: 20130722
  Transmission Date: 20140515
  Serious: No
  Sender: FDA-Public Use
  Company Number: US-009507513-1301USA014227

PATIENT
  Age: 63 Year
  Sex: Male

DRUGS (4)
  1. PEG-INTRON [Suspect]
     Indication: HEPATITIS C
     Dosage: REDIPEN
     Dates: start: 20130128
  2. RIBAVIRIN [Suspect]
     Indication: HEPATITIS C
     Dosage: 5 DF, QD
     Dates: start: 20130128
  3. RIBAVIRIN [Suspect]
     Dosage: 4 DF, QD
  4. RIBAVIRIN [Suspect]
     Dosage: 1 IN AM, 2 IN PM

REACTIONS (9)
  - Pain [Not Recovered/Not Resolved]
  - Heart rate increased [Not Recovered/Not Resolved]
  - Tremor [Not Recovered/Not Resolved]
  - Pain [Unknown]
  - Neck pain [Unknown]
  - Dyspnoea [Unknown]
  - Blood iron decreased [Unknown]
  - Iron deficiency anaemia [Unknown]
  - Asthenia [Unknown]
